FAERS Safety Report 4636982-2 (Version None)
Quarter: 2005Q2

REPORT INFORMATION
  Report Type: 
  Country: None (occurrence: None)
  Receive Date: 20050414
  Receipt Date: 20050401
  Transmission Date: 20051028
  Serious: Yes (Hospitalization)
  Sender: FDA-Public Use
  Company Number: 2005BI007108

PATIENT
  Sex: Female

DRUGS (1)
  1. AVONEX [Suspect]
     Indication: MULTIPLE SCLEROSIS
     Dosage: IM
     Route: 030

REACTIONS (9)
  - ASTHENIA [None]
  - COGNITIVE DISORDER [None]
  - MALAISE [None]
  - MICROSURGERY TO HAND [None]
  - MULTIPLE SCLEROSIS RELAPSE [None]
  - NERVE INJURY [None]
  - POST PROCEDURAL COMPLICATION [None]
  - SURGERY [None]
  - TREMOR [None]
